FAERS Safety Report 9150059 (Version 4)
Quarter: 2013Q1

REPORT INFORMATION
  Report Type: Spontaneous
  Country: US (occurrence: None)
  Receive Date: 20130201
  Receipt Date: 20130329
  Transmission Date: 20140127
  Serious: Yes (Hospitalization, Disabling)
  Sender: FDA-Public Use
  Company Number: ZYD-13-AE-025

PATIENT
  Sex: Female

DRUGS (3)
  1. RISPERIDONE [Suspect]
     Indication: ATTENTION DEFICIT/HYPERACTIVITY DISORDER
     Dosage: 1.5-2 YEARS AGO-ONGOING
     Route: 048
     Dates: end: 20130308
  2. FOCALIN [Concomitant]
  3. CLONIDINE [Concomitant]

REACTIONS (12)
  - Breast pain [None]
  - Breast discharge [None]
  - Breast enlargement [None]
  - Menorrhagia [None]
  - Dysmenorrhoea [None]
  - Fatigue [None]
  - Agitation [None]
  - Aggression [None]
  - Suicidal ideation [None]
  - Social avoidant behaviour [None]
  - Muscle twitching [None]
  - Educational problem [None]
